FAERS Safety Report 13064691 (Version 1)
Quarter: 2016Q4

REPORT INFORMATION
  Report Type: Report from Study
  Country: US (occurrence: US)
  Receive Date: 20161227
  Receipt Date: 20161227
  Transmission Date: 20170207
  Serious: Yes (Other)
  Sender: FDA-Public Use
  Company Number: US-ASCEND THERAPEUTICS-1061294

PATIENT
  Age: 37 Year
  Sex: Male

DRUGS (4)
  1. ETOPOSIDE. [Concomitant]
     Active Substance: ETOPOSIDE
     Route: 041
  2. CISPLATIN. [Concomitant]
     Active Substance: CISPLATIN
     Route: 041
  3. ESTROGEL [Suspect]
     Active Substance: ESTRADIOL
     Route: 065
     Dates: start: 19980101
  4. BLEOMYCIN [Concomitant]
     Active Substance: BLEOMYCIN SULFATE
     Route: 041
     Dates: start: 20130502

REACTIONS (6)
  - Metastases to lung [Recovering/Resolving]
  - Hydronephrosis [None]
  - Nephrectomy [None]
  - Deep vein thrombosis [Unknown]
  - Testicular germ cell tumour mixed stage III [Recovering/Resolving]
  - Ureteric obstruction [None]

NARRATIVE: CASE EVENT DATE: 20130101
